FAERS Safety Report 5821843-3 (Version None)
Quarter: 2008Q3

REPORT INFORMATION
  Report Type: 
  Country: None (occurrence: None)
  Receive Date: 20080724
  Receipt Date: 20080715
  Transmission Date: 20090109
  Serious: Yes (Life-Threatening, Hospitalization, Other)
  Sender: FDA-Public Use
  Company Number: GB-PFIZER INC-2008051576

PATIENT
  Sex: Female

DRUGS (5)
  1. EPIRUBICIN HYDROCHLORIDE [Suspect]
     Indication: BREAST CANCER
  2. CYCLOPHOSPHAMIDE [Suspect]
     Indication: BREAST CANCER
  3. TAXOTERE [Suspect]
     Indication: BREAST CANCER
     Dates: start: 20061201, end: 20070101
  4. FLUOROURACIL [Concomitant]
     Indication: BREAST CANCER
  5. LETROZOLE [Concomitant]
     Dosage: DAILY DOSE:2.5MG-FREQ:DAILY
     Route: 048

REACTIONS (2)
  - COMA [None]
  - PROGRESSIVE MULTIFOCAL LEUKOENCEPHALOPATHY [None]
